FAERS Safety Report 6963959-4 (Version None)
Quarter: 2010Q3

REPORT INFORMATION
  Report Type: 
  Country: None (occurrence: None)
  Receive Date: 20100902
  Receipt Date: 20100902
  Transmission Date: 20110219
  Serious: Yes (Other)
  Sender: FDA-Public Use
  Company Number: None

PATIENT
  Age: 34 Year
  Sex: Female
  Weight: 65.7716 kg

DRUGS (1)
  1. FASTIN [Suspect]
     Dosage: 245MG QD PO
     Route: 048
     Dates: start: 20100823, end: 20100825

REACTIONS (2)
  - FEELING JITTERY [None]
  - HEADACHE [None]
